FAERS Safety Report 4873178-3 (Version None)
Quarter: 2005Q4

REPORT INFORMATION
  Report Type: 
  Country: None (occurrence: None)
  Receive Date: 20051201
  Receipt Date: 20050711
  Transmission Date: 20060501
  Serious: No
  Sender: FDA-Public Use
  Company Number: 2005PV000417

PATIENT
  Age: 67 Year
  Sex: Female
  Weight: 63.5036 kg

DRUGS (6)
  1. BYETTA [Suspect]
     Indication: DIABETES MELLITUS NON-INSULIN-DEPENDENT
     Dosage: 5 MCG;BID;SC
     Route: 058
     Dates: start: 20050706
  2. GLUCOPHAGE ^BRISTOR-MYERS SQUIBB^ [Concomitant]
  3. LEXAPRO [Concomitant]
  4. AMITRIPTYLINE HCL [Concomitant]
  5. NEXIUM [Concomitant]
  6. METOCLOPRAMIDE [Concomitant]

REACTIONS (1)
  - BLOOD GLUCOSE INCREASED [None]
